FAERS Safety Report 4833385-2 (Version None)
Quarter: 2005Q4

REPORT INFORMATION
  Report Type: 
  Country: None (occurrence: None)
  Receive Date: 20051118
  Receipt Date: 20051104
  Transmission Date: 20060501
  Serious: Yes (Life-Threatening, Hospitalization)
  Sender: FDA-Public Use
  Company Number: 2005RL000164

PATIENT
  Age: 68 Year
  Sex: Male

DRUGS (6)
  1. RYTHMOL [Suspect]
     Dosage: 225 MG; BID; PO
     Route: 048
     Dates: start: 20050915, end: 20051001
  2. LISINOPRIL [Concomitant]
  3. DIGOXIN [Concomitant]
  4. METFORMIN [Concomitant]
  5. VERELAN [Concomitant]
  6. WARFARIN [Concomitant]

REACTIONS (2)
  - FUNGAL INFECTION [None]
  - NEUTROPHIL COUNT DECREASED [None]
